FAERS Safety Report 6158415-X (Version None)
Quarter: 2009Q2

REPORT INFORMATION
  Report Type: 
  Country: None (occurrence: None)
  Receive Date: 20090414
  Receipt Date: 20090414
  Transmission Date: 20091009
  Serious: No
  Sender: FDA-Public Use
  Company Number: None

PATIENT
  Age: 82 Year
  Sex: Female
  Weight: 65.7716 kg

DRUGS (1)
  1. FENTANYL [Suspect]

REACTIONS (3)
  - DISORIENTATION [None]
  - DYSPNOEA [None]
  - POST PROCEDURAL COMPLICATION [None]
